FAERS Safety Report 6474607-4 (Version None)
Quarter: 2009Q4

REPORT INFORMATION
  Report Type: 
  Country: None (occurrence: None)
  Receive Date: 20091204
  Receipt Date: 20090129
  Transmission Date: 20100525
  Serious: Yes (Hospitalization)
  Sender: FDA-Public Use
  Company Number: FR-ELI_LILLY_AND_COMPANY-FR200901005103

PATIENT
  Sex: Female

DRUGS (6)
  1. FORTEO [Suspect]
     Indication: OSTEOPOROSIS
     Dosage: 1 D/F, DAILY (1/D)
     Route: 058
     Dates: start: 20081114, end: 20081124
  2. CORTANCYL [Concomitant]
     Dosage: 20 MG, DAILY (1/D)
     Route: 065
  3. AUGMENTIN '125' [Concomitant]
     Dosage: 500 MG, 3/D
     Route: 065
  4. SERETIDE [Concomitant]
     Dosage: 2 INHALATIONS, DAILY (1/D)
     Route: 055
  5. VENTOLIN [Concomitant]
     Dosage: UNK, AS NEEDED
     Route: 065
  6. DOLIPRANE [Concomitant]
     Dosage: UNK, AS NEEDED
     Route: 065

REACTIONS (1)
  - ASTHMA [None]
